FAERS Safety Report 12655182 (Version 1)
Quarter: 2016Q3

REPORT INFORMATION
  Report Type: Spontaneous
  Country: US (occurrence: US)
  Receive Date: 20160816
  Receipt Date: 20160816
  Transmission Date: 20161109
  Serious: No
  Sender: FDA-Public Use
  Company Number: US-ASTRAZENECA-2016SE86094

PATIENT
  Age: 78 Year
  Sex: Female

DRUGS (4)
  1. PRILOSEC [Suspect]
     Active Substance: OMEPRAZOLE MAGNESIUM
     Route: 048
  2. PRILOSEC OTC [Suspect]
     Active Substance: OMEPRAZOLE MAGNESIUM
     Route: 048
  3. ALIGN PROBIOTIC SUPPLEMENTS B INFANTIS CAPSULE NA28CT [Concomitant]
     Route: 048
  4. ALIGN PROBIOTIC SUPPLEMENTS B INFANTIS CAPSULE NA28CT [Concomitant]
     Dosage: 1 CAPSULE, 1X DAY
     Route: 048

REACTIONS (4)
  - Tongue discolouration [Recovered/Resolved]
  - Gingival pain [Recovered/Resolved]
  - Glossodynia [Recovered/Resolved]
  - Tongue dry [Recovered/Resolved]
